FAERS Safety Report 16537697 (Version 1)
Quarter: 2019Q3

REPORT INFORMATION
  Report Type: Spontaneous
  Country: US (occurrence: US)
  Receive Date: 20190708
  Receipt Date: 20190708
  Transmission Date: 20191004
  Serious: No
  Sender: FDA-Public Use
  Company Number: US-LUPIN PHARMACEUTICALS INC.-2019-02865

PATIENT
  Age: 33 Year
  Sex: Female

DRUGS (1)
  1. SOLOSEC [Suspect]
     Active Substance: SECNIDAZOLE
     Indication: BACTERIAL VAGINOSIS
     Dosage: UNK UNK, SINGLE (SPRINKLED ON EITHER YOGURT, APPLESAUCE, OR PUDDING)
     Route: 065
     Dates: start: 20190504

REACTIONS (2)
  - Nausea [Recovered/Resolved]
  - Vomiting [Recovered/Resolved]

NARRATIVE: CASE EVENT DATE: 20190505
